FAERS Safety Report 5774143-4 (Version None)
Quarter: 2008Q2

REPORT INFORMATION
  Report Type: 
  Country: None (occurrence: None)
  Receive Date: 20080616
  Receipt Date: 20080603
  Transmission Date: 20081010
  Serious: Yes (Hospitalization)
  Sender: FDA-Public Use
  Company Number: PT-GILEAD-2008-0016803

PATIENT
  Age: 64 Year
  Weight: 70 kg

DRUGS (7)
  1. VIREAD [Suspect]
     Indication: HIV INFECTION
     Route: 048
     Dates: start: 20020418, end: 20080220
  2. NEVIRAPINE [Concomitant]
     Indication: HIV INFECTION
     Route: 048
     Dates: start: 20020418
  3. LOPINAVIR [Concomitant]
     Indication: HIV INFECTION
     Route: 048
     Dates: start: 20020418
  4. RITONAVIR [Concomitant]
     Indication: HIV INFECTION
     Route: 048
     Dates: start: 20020418
  5. TRIAPINE [Concomitant]
     Indication: HYPERTENSION
     Route: 048
  6. FENOFYBRATE [Concomitant]
     Indication: DYSLIPIDAEMIA
     Route: 048
  7. AAS [Concomitant]
     Route: 048

REACTIONS (3)
  - DEHYDRATION [None]
  - RENAL FAILURE [None]
  - VOMITING [None]
